FAERS Safety Report 15989469 (Version 9)
Quarter: 2021Q2

REPORT INFORMATION
  Report Type: Spontaneous
  Country: US (occurrence: US)
  Receive Date: 20190221
  Receipt Date: 20210607
  Transmission Date: 20210716
  Serious: No
  Sender: FDA-Public Use
  Company Number: US-PFIZER INC-2019076200

PATIENT
  Age: 65 Year
  Sex: Male
  Weight: 102.49 kg

DRUGS (7)
  1. LYRICA [Suspect]
     Active Substance: PREGABALIN
     Indication: OSTEOARTHRITIS
     Dosage: 150 MG, AS NEEDED (75 MG, 2 CAPSULES EVERY 12 HOURS AS NEEDED)
     Route: 048
     Dates: start: 20200206
  2. LYRICA [Suspect]
     Active Substance: PREGABALIN
     Dosage: (75 MG, 2 CAPSULES EVERY 12 HOURS AS NEEDED)
     Route: 048
     Dates: start: 20201210
  3. LYRICA [Suspect]
     Active Substance: PREGABALIN
     Indication: SCIATICA
     Dosage: 150 MG, AS NEEDED (75 MG, 2 CAPSULES EVERY 12 HOURS AS NEEDED)
     Route: 048
  4. LYRICA [Suspect]
     Active Substance: PREGABALIN
     Indication: PAIN
     Dosage: 2 DF, 2X/DAY (INITIALLY, 2 IN MORNING AND 2 IN AFTERNOON)
  5. LYRICA [Suspect]
     Active Substance: PREGABALIN
     Indication: BACK PAIN
     Dosage: 1 DF, 2X/DAY (1 IN MORNING AND 1 IN AFTERNOON)
  6. LYRICA [Suspect]
     Active Substance: PREGABALIN
     Indication: PAIN IN EXTREMITY
     Dosage: UNK
     Dates: start: 20190501
  7. LYRICA [Suspect]
     Active Substance: PREGABALIN
     Dosage: 150 MG, AS NEEDED (75 MG, 2 CAPSULES EVERY 12 HOURS AS NEEDED)
     Route: 048
     Dates: start: 20210119

REACTIONS (1)
  - Drug ineffective [Recovered/Resolved]
